FAERS Safety Report 12929359 (Version 2)
Quarter: 2016Q4

REPORT INFORMATION
  Report Type: Spontaneous
  Country: US (occurrence: US)
  Receive Date: 20161110
  Receipt Date: 20161129
  Transmission Date: 20170207
  Serious: Yes (Other)
  Sender: FDA-Public Use
  Company Number: US-RARE DISEASE THERAPEUTICS, INC.-1059418

PATIENT
  Age: 11 Year
  Sex: Male
  Weight: 44 kg

DRUGS (5)
  1. CYSTADANE [Suspect]
     Active Substance: BETAINE
     Dates: start: 20140717
  2. LEVOCARNITINE. [Concomitant]
     Active Substance: LEVOCARNITINE
  3. ZYRTEC [Concomitant]
     Active Substance: CETIRIZINE HYDROCHLORIDE
  4. METANX (CALCIUM MEFOLINATE, PYRIDOXINE HYDROCHLORID) [Concomitant]
  5. CYSTADANE [Suspect]
     Active Substance: BETAINE
     Indication: HOMOCYSTINURIA
     Dates: start: 2005, end: 20140717

REACTIONS (2)
  - Seizure [Recovered/Resolved]
  - Overdose [Unknown]

NARRATIVE: CASE EVENT DATE: 20161019
